FAERS Safety Report 10790254 (Version 1)
Quarter: 2015Q1

REPORT INFORMATION
  Report Type: Spontaneous
  Country: US (occurrence: US)
  Receive Date: 20150212
  Receipt Date: 20150212
  Transmission Date: 20150721
  Serious: No
  Sender: FDA-Public Use
  Company Number: US-GLAXOSMITHKLINE-A1069296A

PATIENT

DRUGS (2)
  1. DOXYCYCLINE. [Concomitant]
     Active Substance: DOXYCYCLINE
  2. VENTOLIN [Suspect]
     Active Substance: ALBUTEROL SULFATE
     Indication: PRODUCT USED FOR UNKNOWN INDICATION
     Dosage: UNKNOWN STRENGTH, 2 PUFFS EVERY 2 HOURS AS NEEDED
     Route: 055
     Dates: start: 20140329

REACTIONS (3)
  - Product quality issue [Unknown]
  - Adverse event [Unknown]
  - Wheezing [Unknown]

NARRATIVE: CASE EVENT DATE: 201404
